FAERS Safety Report 16682643 (Version 2)
Quarter: 2021Q3

REPORT INFORMATION
  Report Type: Other
  Country: DE (occurrence: DE)
  Receive Date: 20190808
  Receipt Date: 20210920
  Transmission Date: 20211014
  Serious: Yes (Other)
  Sender: FDA-Public Use
  Company Number: DE-MACLEODS PHARMACEUTICALS US LTD-MAC2019022434

PATIENT

DRUGS (2)
  1. IRBESARTAN. [Suspect]
     Active Substance: IRBESARTAN
     Indication: HYPERTENSION
     Dosage: 300 MILLIGRAM, QD, 2X150 MILLIGRAM, PZN 09637012
     Route: 048
  2. IRBESARTAN HCT STADA [Suspect]
     Active Substance: HYDROCHLOROTHIAZIDE\IRBESARTAN
     Indication: HYPERTENSION
     Dosage: 1 DOSAGE FORM, QD, PZN 09715137, USABLE UNTIL: 07/2022
     Route: 048

REACTIONS (2)
  - Blood pressure increased [Recovered/Resolved]
  - Therapeutic product effect decreased [Unknown]
